FAERS Safety Report 9566928 (Version 1)
Quarter: 2013Q3

REPORT INFORMATION
  Report Type: Spontaneous
  Country: US (occurrence: US)
  Receive Date: 20130930
  Receipt Date: 20130930
  Transmission Date: 20140515
  Serious: No
  Sender: FDA-Public Use
  Company Number: US-AMGEN-USASP2012060189

PATIENT
  Age: 68 Year
  Sex: Male

DRUGS (2)
  1. ENBREL [Suspect]
     Indication: RHEUMATOID ARTHRITIS
     Dosage: 50 UNK, QWK
     Dates: start: 20080615
  2. METHOTREXATE [Concomitant]
     Dosage: 15 UNK, UNK
     Dates: start: 2009

REACTIONS (1)
  - Drug effect incomplete [Recovered/Resolved]
